FAERS Safety Report 20585913 (Version 1)
Quarter: 2022Q1

REPORT INFORMATION
  Report Type: Spontaneous
  Country: GB (occurrence: GB)
  Receive Date: 20220312
  Receipt Date: 20220312
  Transmission Date: 20220423
  Serious: Yes (Other)
  Sender: FDA-Public Use
  Company Number: GB-ABBVIE-22K-251-4311947-00

PATIENT
  Age: 78 Year
  Sex: Male

DRUGS (1)
  1. EPILIM [Suspect]
     Active Substance: VALPROATE SODIUM
     Indication: Bipolar disorder
     Route: 065
     Dates: start: 20191230

REACTIONS (11)
  - Aphasia [Unknown]
  - Seizure [Unknown]
  - Encephalopathy [Unknown]
  - Fall [Unknown]
  - Balance disorder [Unknown]
  - Aphasia [Unknown]
  - Mobility decreased [Unknown]
  - Hypophagia [Recovering/Resolving]
  - Fluid intake reduced [Recovering/Resolving]
  - Mental impairment [Unknown]
  - Drug interaction [Unknown]
